FAERS Safety Report 18291633 (Version 1)
Quarter: 2020Q3

REPORT INFORMATION
  Report Type: Spontaneous
  Country: JP (occurrence: JP)
  Receive Date: 20200921
  Receipt Date: 20200921
  Transmission Date: 20201103
  Serious: Yes (Other)
  Sender: FDA-Public Use
  Company Number: JP-PFIZER INC-2020357950

PATIENT
  Sex: Male

DRUGS (3)
  1. CARDENALIN [Suspect]
     Active Substance: DOXAZOSIN MESYLATE
     Indication: HYPERTENSION
     Dosage: HALF OF 0.5 G, STARTED FROM AROUND ONE AND HALF YEARS
     Route: 048
  2. MAINTATE [Interacting]
     Active Substance: BISOPROLOL FUMARATE
     Dosage: UNK
     Route: 048
  3. NORVASC [Interacting]
     Active Substance: AMLODIPINE BESYLATE
     Dosage: UNK
     Route: 048

REACTIONS (5)
  - Drug interaction [Unknown]
  - Cardiac dysfunction [Unknown]
  - Malaise [Unknown]
  - Cardiac disorder [Unknown]
  - Brain natriuretic peptide increased [Unknown]
